FAERS Safety Report 6218881-8 (Version None)
Quarter: 2009Q2

REPORT INFORMATION
  Report Type: 
  Country: None (occurrence: None)
  Receive Date: 20090608
  Receipt Date: 20090605
  Transmission Date: 20091009
  Serious: Yes (Hospitalization)
  Sender: FDA-Public Use
  Company Number: US-EISAI INC.-E2080-00167-SPO-US

PATIENT
  Age: 19 Year
  Sex: Female

DRUGS (1)
  1. BANZEL [Suspect]
     Route: 048

REACTIONS (1)
  - LETHARGY [None]
